FAERS Safety Report 4454509-5 (Version None)
Quarter: 2004Q3

REPORT INFORMATION
  Report Type: 
  Country: None (occurrence: None)
  Receive Date: 20040921
  Receipt Date: 20040719
  Transmission Date: 20050211
  Serious: Yes (Other)
  Sender: FDA-Public Use
  Company Number: PHBS2004CA09635

PATIENT
  Sex: Female

DRUGS (1)
  1. ESTRADIOL [Suspect]
     Dates: start: 20021001

REACTIONS (2)
  - APPLICATION SITE DERMATITIS [None]
  - OROPHARYNGEAL SWELLING [None]
